FAERS Safety Report 19354751 (Version 1)
Quarter: 2021Q2

REPORT INFORMATION
  Report Type: Spontaneous
  Country: US (occurrence: US)
  Receive Date: 20210531
  Receipt Date: 20210531
  Transmission Date: 20210717
  Serious: Yes (Other)
  Sender: FDA-Public Use
  Company Number: NVSC2021US116838

PATIENT
  Sex: Female

DRUGS (10)
  1. VIVISCAL [Concomitant]
     Indication: PRODUCT USED FOR UNKNOWN INDICATION
     Dosage: UNK UNK, UNKNOWN
     Route: 065
  2. SYNTHROID [Concomitant]
     Active Substance: LEVOTHYROXINE SODIUM
     Dosage: UNK UNK, UNKNOWN (DOSE INCREASED)
     Route: 065
     Dates: start: 202103
  3. NEUTROFIL [Concomitant]
     Indication: PRODUCT USED FOR UNKNOWN INDICATION
     Dosage: UNK UNK, UNKNOWN
     Route: 065
  4. RECLAST [Suspect]
     Active Substance: ZOLEDRONIC ACID
     Dosage: 5 MG, Q12MO
     Route: 065
     Dates: start: 2020
  5. SYNTHROID [Concomitant]
     Active Substance: LEVOTHYROXINE SODIUM
     Indication: PRODUCT USED FOR UNKNOWN INDICATION
     Dosage: UNK UNK, UNKNOWN
     Route: 065
  6. SYNTHROID [Concomitant]
     Active Substance: LEVOTHYROXINE SODIUM
     Dosage: UNK UNK, UNKNOWN (DOSE REDUCED)
     Route: 065
     Dates: start: 2019
  7. RECLAST [Suspect]
     Active Substance: ZOLEDRONIC ACID
     Dosage: 5 MG, Q12MO
     Route: 065
     Dates: start: 2019
  8. VITAMIN D [Concomitant]
     Active Substance: VITAMIN D NOS
     Indication: PRODUCT USED FOR UNKNOWN INDICATION
     Dosage: UNK UNK, UNKNOWN
     Route: 065
  9. RECLAST [Suspect]
     Active Substance: ZOLEDRONIC ACID
     Indication: PRODUCT USED FOR UNKNOWN INDICATION
     Dosage: 5 MG, Q12MO
     Route: 065
     Dates: start: 2017
  10. ROGAINE [Concomitant]
     Active Substance: MINOXIDIL
     Indication: PRODUCT USED FOR UNKNOWN INDICATION
     Dosage: UNK
     Route: 065

REACTIONS (6)
  - Bone lesion [Unknown]
  - Condition aggravated [Unknown]
  - Dysphonia [Unknown]
  - Thyroid cancer [Unknown]
  - Alopecia [Not Recovered/Not Resolved]
  - Product dose omission issue [Unknown]

NARRATIVE: CASE EVENT DATE: 2017
